FAERS Safety Report 23895625 (Version 1)
Quarter: 2024Q2

REPORT INFORMATION
  Report Type: Spontaneous
  Country: US (occurrence: US)
  Receive Date: 20240524
  Receipt Date: 20240524
  Transmission Date: 20240715
  Serious: Yes (Other)
  Sender: FDA-Public Use
  Company Number: US-Accord-381167

PATIENT
  Age: 46 Year
  Sex: Female

DRUGS (2)
  1. QUETIAPINE FUMARATE [Suspect]
     Active Substance: QUETIAPINE FUMARATE
     Indication: Insomnia
     Route: 048
  2. SEROQUEL [Suspect]
     Active Substance: QUETIAPINE FUMARATE
     Indication: Insomnia

REACTIONS (13)
  - Polymenorrhoea [Unknown]
  - Menopause [Unknown]
  - Maternal exposure during pregnancy [Unknown]
  - Suicidal ideation [Unknown]
  - Victim of sexual abuse [Unknown]
  - Off label use [Unknown]
  - Insomnia [Unknown]
  - Negative thoughts [Unknown]
  - Memory impairment [Unknown]
  - Anger [Unknown]
  - Physical assault [Unknown]
  - Victim of abuse [Unknown]
  - Condition aggravated [Unknown]
